FAERS Safety Report 5814335-9 (Version None)
Quarter: 2008Q3

REPORT INFORMATION
  Report Type: 
  Country: None (occurrence: None)
  Receive Date: 20080715
  Receipt Date: 20080630
  Transmission Date: 20090109
  Serious: Yes (Hospitalization, Other)
  Sender: FDA-Public Use
  Company Number: 029462

PATIENT
  Age: 27 Year
  Sex: Female
  Weight: 56.7 kg

DRUGS (4)
  1. JOLESSA [LEVONORGESTROL, ETHINYLESTRADIOL) TABLET, 0.15/0.30MG [Suspect]
     Indication: ORAL CONTRACEPTION
     Dosage: 1 TABLET, QD, ORAL
     Route: 048
     Dates: start: 20070426, end: 20080417
  2. ADVAIR DISKUS 100/50 [Concomitant]
  3. SYNTHROID [Concomitant]
  4. ALBUTEROL [Concomitant]

REACTIONS (10)
  - ATRIAL SEPTAL DEFECT [None]
  - CEREBROVASCULAR ACCIDENT [None]
  - EYE SWELLING [None]
  - FEELING ABNORMAL [None]
  - HORNER'S SYNDROME [None]
  - LIMB INJURY [None]
  - PAIN IN EXTREMITY [None]
  - PUPILS UNEQUAL [None]
  - SENSORY LOSS [None]
  - THROMBOSIS [None]
